FAERS Safety Report 5629351-X (Version None)
Quarter: 2008Q1

REPORT INFORMATION
  Report Type: 
  Country: None (occurrence: None)
  Receive Date: 20080218
  Receipt Date: 20080116
  Transmission Date: 20080703
  Serious: Yes (Other)
  Sender: FDA-Public Use
  Company Number: AU-BAYER-200811136GPV

PATIENT
  Age: 71 Year
  Sex: Male
  Weight: 70 kg

DRUGS (1)
  1. ULTRAVIST 300 [Suspect]
     Indication: COMPUTERISED TOMOGRAM ABDOMEN
     Dosage: TOTAL DAILY DOSE: 75 ML
     Route: 042
     Dates: start: 20080115, end: 20080115

REACTIONS (4)
  - ANAPHYLACTOID REACTION [None]
  - DYSPNOEA [None]
  - NAUSEA [None]
  - RASH [None]
